FAERS Safety Report 9119490 (Version 1)
Quarter: 2013Q1

REPORT INFORMATION
  Report Type: Spontaneous
  Country: US (occurrence: US)
  Receive Date: 20130226
  Receipt Date: 20130226
  Transmission Date: 20140127
  Serious: No
  Sender: FDA-Public Use
  Company Number: US-TEVA-388301USA

PATIENT
  Sex: Female
  Weight: 54.48 kg

DRUGS (2)
  1. QNASL [Suspect]
     Dosage: 360 MCG DAILY
     Dates: start: 20130124, end: 20130207
  2. AMLODIPINE [Concomitant]
     Indication: HYPERTENSION

REACTIONS (7)
  - Neck pain [Not Recovered/Not Resolved]
  - Fatigue [Not Recovered/Not Resolved]
  - Osteitis [Not Recovered/Not Resolved]
  - Pain in jaw [Not Recovered/Not Resolved]
  - Pain of skin [Recovered/Resolved]
  - Rash [Recovered/Resolved]
  - Headache [Recovered/Resolved]
